FAERS Safety Report 19859946 (Version 2)
Quarter: 2021Q4

REPORT INFORMATION
  Report Type: Spontaneous
  Country: US (occurrence: US)
  Receive Date: 20210920
  Receipt Date: 20211211
  Transmission Date: 20220304
  Serious: Yes (Other)
  Sender: FDA-Public Use
  Company Number: US-TEVA-2021-US-1956854

PATIENT
  Age: 57 Year
  Sex: Male
  Weight: 81.64 kg

DRUGS (18)
  1. AMLODIPINE\VALSARTAN [Suspect]
     Active Substance: AMLODIPINE\VALSARTAN
     Indication: Hypertension
     Dosage: 10-160 MG
     Route: 048
     Dates: start: 20150505, end: 20181123
  2. AMLODIPINE\VALSARTAN [Suspect]
     Active Substance: AMLODIPINE\VALSARTAN
     Dosage: 10-160 MG
     Route: 048
     Dates: start: 20170516, end: 20171207
  3. AMLODIPINE\VALSARTAN [Suspect]
     Active Substance: AMLODIPINE\VALSARTAN
     Indication: Hypertension
     Dosage: 10-160 MG
     Route: 048
     Dates: start: 20170224, end: 20180801
  4. AMLODIPINE\VALSARTAN [Suspect]
     Active Substance: AMLODIPINE\VALSARTAN
     Indication: Hypertension
     Dosage: 10-160 MG
     Route: 048
     Dates: start: 2017
  5. AMLODIPINE\VALSARTAN [Suspect]
     Active Substance: AMLODIPINE\VALSARTAN
     Indication: Hypertension
     Dosage: 10-160 MG
     Route: 048
     Dates: start: 2015
  6. EXFORGE HCT [Suspect]
     Active Substance: AMLODIPINE BESYLATE\HYDROCHLOROTHIAZIDE\VALSARTAN
     Indication: Hypertension
     Dosage: 10-160-12.5 MG,ONE TABLET BY MOUTH ONCE DAILY
     Route: 048
  7. LISINOPRIL [Concomitant]
     Active Substance: LISINOPRIL
     Indication: Hypertension
     Dosage: 40 MILLIGRAM DAILY;
     Route: 048
  8. AMLODIPINE [Concomitant]
     Active Substance: AMLODIPINE BESYLATE
     Indication: Hypertension
     Dosage: 10 MILLIGRAM DAILY;
     Route: 048
  9. Felaxia [Concomitant]
     Indication: Depression
     Route: 065
     Dates: start: 2012
  10. Coladapin [Concomitant]
     Indication: Anxiety
     Route: 065
     Dates: start: 2012
  11. ONDANSETRON [Concomitant]
     Active Substance: ONDANSETRON
     Indication: Nausea
     Dosage: 4 MILLIGRAM DAILY;
     Route: 065
     Dates: start: 2002
  12. CLONAZEPAM [Concomitant]
     Active Substance: CLONAZEPAM
     Indication: Sleep disorder
     Dosage: 4 MILLIGRAM DAILY;
     Route: 065
     Dates: start: 2001
  13. VYVANSE [Concomitant]
     Active Substance: LISDEXAMFETAMINE DIMESYLATE
     Route: 065
     Dates: start: 2001
  14. ATORVASTATIN [Concomitant]
     Active Substance: ATORVASTATIN
     Indication: Blood cholesterol abnormal
     Dosage: 40 MILLIGRAM DAILY;
     Route: 065
  15. Syntyroid [Concomitant]
     Indication: Thyroid hormone replacement therapy
     Dosage: 0.75 MG ONCE A DAY
     Route: 065
     Dates: start: 2012
  16. Corydalis [Concomitant]
     Indication: Depression
     Route: 065
  17. VITAMINS [Concomitant]
     Active Substance: VITAMINS
     Route: 065
  18. MAGNESIUM [Concomitant]
     Active Substance: MAGNESIUM
     Route: 065

REACTIONS (9)
  - Prostate cancer [Unknown]
  - Trigeminal neuralgia [Unknown]
  - Pain [Unknown]
  - Vision blurred [Unknown]
  - Neck pain [Unknown]
  - Torticollis [Unknown]
  - Lymphoedema [Unknown]
  - Urinary tract disorder [Unknown]
  - Discomfort [Unknown]
